FAERS Safety Report 4634709-1 (Version None)
Quarter: 2005Q2

REPORT INFORMATION
  Report Type: 
  Country: None (occurrence: None)
  Receive Date: 20050412
  Receipt Date: 20050331
  Transmission Date: 20051028
  Serious: Yes (Hospitalization)
  Sender: FDA-Public Use
  Company Number: 2005053855

PATIENT
  Sex: 0

DRUGS (4)
  1. SULPERAZON (SULBACTAM, CEFOPERAZONE) [Suspect]
     Indication: ILL-DEFINED DISORDER
     Dosage: INTRAVENOUS
     Route: 042
     Dates: start: 20050301, end: 20050301
  2. GALENIC /PANIPENEM/BETAMIPRON/ (BETAMIPRON, PANIPENEM) [Suspect]
     Indication: ILL-DEFINED DISORDER
     Dosage: INTRAVENOUS
     Route: 042
     Dates: start: 20050302, end: 20050301
  3. CLINDAMYCIN [Suspect]
     Indication: ILL-DEFINED DISORDER
     Dosage: INTRAVENOUS
     Route: 042
     Dates: start: 20050302, end: 20050320
  4. VANCOMYCIN [Suspect]
     Indication: ILL-DEFINED DISORDER

REACTIONS (3)
  - ANURIA [None]
  - RENAL FAILURE ACUTE [None]
  - TOXIC EPIDERMAL NECROLYSIS [None]
